FAERS Safety Report 6959582-8 (Version None)
Quarter: 2010Q3

REPORT INFORMATION
  Report Type: 
  Country: None (occurrence: None)
  Receive Date: 20100830
  Receipt Date: 20100830
  Transmission Date: 20110219
  Serious: Yes (Disabling)
  Sender: FDA-Public Use
  Company Number: 1022556-2010-00052

PATIENT

DRUGS (1)
  1. ICY HOT MEDICATED NO MESS APPLICATOR MAX STRENGTH [Suspect]
     Indication: MYALGIA
     Dosage: TOPICAL
     Route: 061

REACTIONS (2)
  - NERVE INJURY [None]
  - SCAR [None]
